FAERS Safety Report 17724791 (Version 1)
Quarter: 2020Q2

REPORT INFORMATION
  Report Type: Spontaneous
  Country: US (occurrence: US)
  Receive Date: 20200429
  Receipt Date: 20200429
  Transmission Date: 20200714
  Serious: Yes (Other)
  Sender: FDA-Public Use
  Company Number: None

PATIENT
  Age: 61 Year
  Sex: Female
  Weight: 57.6 kg

DRUGS (4)
  1. LAXAPRO [Concomitant]
  2. XANAX [Concomitant]
     Active Substance: ALPRAZOLAM
  3. ALPRAZOLAM. [Suspect]
     Active Substance: ALPRAZOLAM
     Indication: ANXIETY
     Dosage: ?          QUANTITY:1 TABLET(S);?
     Route: 048
     Dates: start: 20170130, end: 20170224
  4. ESCITALOPRAM [Suspect]
     Active Substance: ESCITALOPRAM OXALATE

REACTIONS (3)
  - Anxiety [None]
  - Seizure [None]
  - Therapeutic response changed [None]

NARRATIVE: CASE EVENT DATE: 20170130
